FAERS Safety Report 6846356-1 (Version None)
Quarter: 2010Q3

REPORT INFORMATION
  Report Type: 
  Country: None (occurrence: None)
  Receive Date: 20100715
  Receipt Date: 20080731
  Transmission Date: 20110219
  Serious: No
  Sender: FDA-Public Use
  Company Number: US-PFIZER INC-2007077235

PATIENT
  Sex: Male
  Weight: 106.59 kg

DRUGS (8)
  1. CHANTIX [Suspect]
     Indication: NICOTINE DEPENDENCE
     Route: 048
     Dates: start: 20070901
  2. LIPITOR [Suspect]
     Indication: BLOOD CHOLESTEROL INCREASED
     Route: 048
  3. TOPROL-XL [Concomitant]
  4. PLAVIX [Concomitant]
  5. TRICOR [Concomitant]
  6. ASPIRIN [Concomitant]
  7. XANAX [Concomitant]
  8. LEXAPRO [Concomitant]

REACTIONS (4)
  - ABNORMAL DREAMS [None]
  - ANGINA PECTORIS [None]
  - HIGH DENSITY LIPOPROTEIN DECREASED [None]
  - LOW DENSITY LIPOPROTEIN INCREASED [None]
